FAERS Safety Report 6585408-0 (Version None)
Quarter: 2010Q1

REPORT INFORMATION
  Report Type: 
  Country: None (occurrence: None)
  Receive Date: 20100216
  Receipt Date: 20100216
  Transmission Date: 20100710
  Serious: Yes (Hospitalization)
  Sender: FDA-Public Use
  Company Number: None

PATIENT
  Sex: Male
  Weight: 60.3 kg

DRUGS (3)
  1. CARBOPLATIN [Suspect]
     Dosage: 1175 MG
  2. ERBITUX [Suspect]
     Dosage: 4572 MG
  3. TAXOL [Suspect]
     Dosage: 395 MG

REACTIONS (10)
  - BRONCHOSCOPY ABNORMAL [None]
  - DEHYDRATION [None]
  - HAEMOPTYSIS [None]
  - LUNG INFECTION [None]
  - NEUTROPENIA [None]
  - PNEUMONIA [None]
  - PRODUCTIVE COUGH [None]
  - PULMONARY THROMBOSIS [None]
  - PYREXIA [None]
  - WEIGHT DECREASED [None]
